FAERS Safety Report 12936593 (Version 1)
Quarter: 2016Q4

REPORT INFORMATION
  Report Type: Spontaneous
  Country: TH (occurrence: TH)
  Receive Date: 20161114
  Receipt Date: 20161114
  Transmission Date: 20170207
  Serious: Yes (Death)
  Sender: FDA-Public Use
  Company Number: TH-PFIZER INC-2016521228

PATIENT
  Age: 76 Year
  Sex: Male

DRUGS (2)
  1. SUNITINIB MALATE. [Suspect]
     Active Substance: SUNITINIB MALATE
     Indication: GASTROINTESTINAL STROMAL TUMOUR
     Dosage: UNK
  2. CORDYCEPS SINENSIS EXTRACT\PANAX GINSENG ROOT EXTRACT\POMEGRANATE [Interacting]
     Active Substance: CORDYCEPS SINENSIS EXTRACT\PANAX GINSENG ROOT EXTRACT\POMEGRANATE
     Indication: GASTROINTESTINAL STROMAL TUMOUR
     Dosage: UNK

REACTIONS (5)
  - Herbal interaction [Fatal]
  - Acute hepatic failure [Fatal]
  - Asterixis [None]
  - Multiple organ dysfunction syndrome [Fatal]
  - Somnolence [None]
